FAERS Safety Report 13521812 (Version 1)
Quarter: 2017Q2

REPORT INFORMATION
  Report Type: Report from Study
  Country: AR (occurrence: AR)
  Receive Date: 20170508
  Receipt Date: 20170508
  Transmission Date: 20170830
  Serious: Yes (Other)
  Sender: FDA-Public Use
  Company Number: AR-EMD SERONO-8156925

PATIENT
  Age: 11 Year
  Sex: Male

DRUGS (1)
  1. SAIZEN [Suspect]
     Active Substance: SOMATROPIN
     Indication: GROWTH HORMONE DEFICIENCY

REACTIONS (3)
  - Cardiac disorder [Unknown]
  - Chest pain [Unknown]
  - Arrhythmia [Unknown]

NARRATIVE: CASE EVENT DATE: 20170502
